FAERS Safety Report 5784644-0 (Version None)
Quarter: 2008Q2

REPORT INFORMATION
  Report Type: 
  Country: None (occurrence: None)
  Receive Date: 20080605
  Receipt Date: 20080410
  Transmission Date: 20081010
  Serious: No
  Sender: FDA-Public Use
  Company Number: A0722086A

PATIENT
  Age: 50 Year
  Sex: Female

DRUGS (3)
  1. ALLI [Suspect]
  2. AMITRIPTYLINE HCL [Concomitant]
  3. HORMONE REPLACEMENT [Concomitant]
     Route: 048

REACTIONS (4)
  - ABDOMINAL DISTENSION [None]
  - CONSTIPATION [None]
  - FAECES DISCOLOURED [None]
  - INTESTINAL FUNCTIONAL DISORDER [None]
